FAERS Safety Report 7098858-3 (Version None)
Quarter: 2010Q4

REPORT INFORMATION
  Report Type: 
  Country: None (occurrence: None)
  Receive Date: 20101112
  Receipt Date: 20101104
  Transmission Date: 20110411
  Serious: Yes (Hospitalization)
  Sender: FDA-Public Use
  Company Number: DE-ABBOTT-10P-062-0618269-00

PATIENT
  Sex: Female

DRUGS (3)
  1. HUMIRA [Suspect]
     Indication: CROHN'S DISEASE
     Route: 058
     Dates: start: 20080716, end: 20090810
  2. LEVOTHYROXINE SODIUM [Concomitant]
     Indication: THYROID DISORDER
     Dates: start: 19880101
  3. URSODIOL [Concomitant]
     Indication: CHOLANGITIS SCLEROSING
     Dates: start: 20071101

REACTIONS (2)
  - CHOLELITHIASIS [None]
  - GALLBLADDER CANCER [None]
